FAERS Safety Report 4899882-9 (Version None)
Quarter: 2006Q1

REPORT INFORMATION
  Report Type: 
  Country: None (occurrence: None)
  Receive Date: 20060118
  Receipt Date: 20051013
  Transmission Date: 20060701
  Serious: No
  Sender: FDA-Public Use
  Company Number: 2005002009

PATIENT
  Age: 70 Year
  Sex: Female
  Weight: 70.3075 kg

DRUGS (3)
  1. TARCEVA [Suspect]
     Indication: OVARIAN CANCER
     Dosage: 150 MG (QD), ORAL
     Route: 048
  2. TOPROL-XL [Concomitant]
  3. PERCOCET [Concomitant]

REACTIONS (6)
  - ABDOMINAL PAIN UPPER [None]
  - CONSTIPATION [None]
  - DRY SKIN [None]
  - MILIA [None]
  - RASH [None]
  - SKIN EXFOLIATION [None]
